FAERS Safety Report 9089274 (Version 1)
Quarter: 2013Q1

REPORT INFORMATION
  Report Type: Spontaneous
  Country: US (occurrence: US)
  Receive Date: 20130201
  Receipt Date: 20130201
  Transmission Date: 20140127
  Serious: No
  Sender: FDA-Public Use
  Company Number: US-PFIZER INC-2013037087

PATIENT
  Age: 79 Year
  Sex: Female

DRUGS (3)
  1. INDERAL LA [Suspect]
     Indication: MIGRAINE
     Dosage: 120 MG, UNK
     Route: 048
     Dates: start: 1987
  2. INDERAL LA [Suspect]
     Indication: BLOOD PRESSURE
     Dosage: 120 MG (ONE CAPSULE), IN THE EVENING
     Route: 048
     Dates: start: 20121229
  3. ESTRACE [Concomitant]
     Dosage: UNK

REACTIONS (2)
  - Headache [Unknown]
  - Pollakiuria [Unknown]
